FAERS Safety Report 7511315-2 (Version None)
Quarter: 2011Q2

REPORT INFORMATION
  Report Type: 
  Country: None (occurrence: None)
  Receive Date: 20110531
  Receipt Date: 20110517
  Transmission Date: 20111010
  Serious: Yes (Other)
  Sender: FDA-Public Use
  Company Number: US-BAYER-201024040NA

PATIENT
  Age: 20 Year
  Sex: Female
  Weight: 57 kg

DRUGS (10)
  1. LAMOTRIGINE [Concomitant]
     Dosage: 50 MG, UNK
     Dates: start: 20061001
  2. PROAIR HFA [Concomitant]
     Indication: MULTIPLE ALLERGIES
     Dosage: 90 MCG/24HR, UNK
     Dates: start: 20081201
  3. IBUPROFEN [Concomitant]
     Indication: BACK PAIN
     Dosage: UNK
     Dates: start: 20060101, end: 20090101
  4. YAZ [Suspect]
     Indication: MENORRHAGIA
  5. MELATONIN [Concomitant]
     Dosage: UNK
     Dates: start: 20081201
  6. LEVOTHYROXINE SODIUM [Concomitant]
     Indication: HYPOTHYROIDISM
     Dosage: UNK
     Route: 048
     Dates: start: 20080901
  7. FLUOXETINE HYDROCHLORIDE [Concomitant]
     Dosage: 10 MG, UNK
     Route: 048
     Dates: start: 20081001, end: 20090901
  8. LEVOTHYROXINE SODIUM [Concomitant]
     Indication: HYPOTHYROIDISM
     Dosage: UNK
     Dates: start: 20060101, end: 20090101
  9. YAZ [Suspect]
     Indication: CONTRACEPTION
     Dosage: QD
     Route: 048
     Dates: start: 20070101, end: 20091001
  10. FEXOFENADINE HCL [Concomitant]
     Indication: MULTIPLE ALLERGIES
     Dosage: 180 MG, UNK
     Dates: start: 20060101, end: 20090101

REACTIONS (4)
  - GALLBLADDER DISORDER [None]
  - ORGAN FAILURE [None]
  - CHOLECYSTITIS [None]
  - GALLBLADDER CHOLESTEROLOSIS [None]
